FAERS Safety Report 6736973-1 (Version None)
Quarter: 2010Q2

REPORT INFORMATION
  Report Type: 
  Country: None (occurrence: None)
  Receive Date: 20100523
  Receipt Date: 20100415
  Transmission Date: 20101027
  Serious: No
  Sender: FDA-Public Use
  Company Number: US-ALLERGAN-1004964US

PATIENT
  Sex: Male

DRUGS (5)
  1. COMBIGAN [Suspect]
     Indication: GLAUCOMA
     Dosage: UNK
     Route: 047
     Dates: start: 20090501, end: 20100101
  2. LUMIGAN [Concomitant]
     Dosage: UNK
  3. FISH OIL [Concomitant]
  4. MULTI-VITAMINS [Concomitant]
  5. ASPIRIN [Concomitant]

REACTIONS (2)
  - EYE PRURITUS [None]
  - OCULAR HYPERAEMIA [None]
